FAERS Safety Report 5990100-7 (Version None)
Quarter: 2008Q4

REPORT INFORMATION
  Report Type: 
  Country: None (occurrence: None)
  Receive Date: 20081211
  Receipt Date: 20081205
  Transmission Date: 20090506
  Serious: Yes (Other)
  Sender: FDA-Public Use
  Company Number: US-JNJFOC-20081202221

PATIENT
  Sex: Female
  Weight: 61.24 kg

DRUGS (4)
  1. DURAGESIC-100 [Suspect]
     Indication: FIBROMYALGIA
     Route: 062
  2. DURAGESIC-100 [Suspect]
     Indication: COLITIS
     Route: 062
  3. DURAGESIC-100 [Suspect]
     Indication: PANCREATITIS
     Route: 062
  4. DURAGESIC-100 [Suspect]
     Indication: RENAL DISORDER
     Dosage: 100 UG/HR + 25 UG/HR
     Route: 062

REACTIONS (4)
  - DRUG DOSE OMISSION [None]
  - INCORRECT DRUG ADMINISTRATION DURATION [None]
  - PAIN [None]
  - WITHDRAWAL SYNDROME [None]
